FAERS Safety Report 23398275 (Version 2)
Quarter: 2024Q1

REPORT INFORMATION
  Report Type: Spontaneous
  Country: US (occurrence: US)
  Receive Date: 20240112
  Receipt Date: 20240318
  Transmission Date: 20240409
  Serious: Yes (Hospitalization)
  Sender: FDA-Public Use
  Company Number: US-PFIZER INC-202400005528

PATIENT
  Age: 73 Year
  Sex: Female
  Weight: 94.331 kg

DRUGS (2)
  1. PAXLOVID [Suspect]
     Active Substance: NIRMATRELVIR\RITONAVIR
     Indication: COVID-19 treatment
     Dosage: UNK
     Dates: start: 20231220, end: 20231225
  2. PAXLOVID [Suspect]
     Active Substance: NIRMATRELVIR\RITONAVIR
     Dosage: 1X/DAY
     Dates: start: 20240103

REACTIONS (10)
  - Laryngitis [Not Recovered/Not Resolved]
  - Conjunctivitis [Recovered/Resolved]
  - Headache [Recovered/Resolved]
  - Cough [Recovered/Resolved]
  - Asthenia [Not Recovered/Not Resolved]
  - Sinus congestion [Recovered/Resolved]
  - Dyspnoea [Recovered/Resolved]
  - COVID-19 [Unknown]
  - Disease recurrence [Unknown]
  - Off label use [Unknown]

NARRATIVE: CASE EVENT DATE: 20231228
